FAERS Safety Report 8261290-0 (Version None)
Quarter: 2012Q2

REPORT INFORMATION
  Report Type: 
  Country: None (occurrence: None)
  Receive Date: 20120405
  Receipt Date: 20120329
  Transmission Date: 20120825
  Serious: Yes (Other)
  Sender: FDA-Public Use
  Company Number: CR-ABBOTT-12P-039-0918073-00

PATIENT
  Sex: Female
  Weight: 80.1 kg

DRUGS (2)
  1. FLUOXETINE [Concomitant]
     Indication: PANIC DISORDER
     Route: 048
     Dates: start: 20100101
  2. FENOFIBRATE [Suspect]
     Indication: HYPERTRIGLYCERIDAEMIA
     Route: 048
     Dates: start: 20120221, end: 20120320

REACTIONS (5)
  - BLOOD TRIGLYCERIDES INCREASED [None]
  - BLOOD CHOLESTEROL INCREASED [None]
  - HIGH DENSITY LIPOPROTEIN DECREASED [None]
  - DRUG INEFFECTIVE [None]
  - LOW DENSITY LIPOPROTEIN INCREASED [None]
